FAERS Safety Report 11330472 (Version 1)
Quarter: 2015Q3

REPORT INFORMATION
  Report Type: Spontaneous
  Country: CH (occurrence: CH)
  Receive Date: 20150803
  Receipt Date: 20150803
  Transmission Date: 20151125
  Serious: Yes (Hospitalization)
  Sender: FDA-Public Use
  Company Number: CH-TEVA-577556ISR

PATIENT
  Age: 12 Year
  Sex: Male
  Weight: 37 kg

DRUGS (8)
  1. METHOTREXATE (METHOTREXATE SODIUM) [Suspect]
     Active Substance: METHOTREXATE SODIUM
     Dosage: 6000 MILLIGRAM DAILY; ACCORDING TO PROTOCOL OF TRIAL COG AALL1131
     Route: 041
     Dates: start: 20150602
  2. METHOTREXATE (METHOTREXATE SODIUM) [Suspect]
     Active Substance: METHOTREXATE SODIUM
     Indication: B PRECURSOR TYPE ACUTE LEUKAEMIA
     Dosage: 15 MILLIGRAM DAILY; 50 MG/2 ML
     Route: 037
  3. METHOTREXATE (METHOTREXATE SODIUM) [Suspect]
     Active Substance: METHOTREXATE SODIUM
     Dosage: 6000 MILLIGRAM DAILY; ADMINISTERED ON 01-JUN-2015 AND 02-JUN-2015, ACCORDING TO
     Route: 041
     Dates: start: 20150601
  4. CLEXANE [Concomitant]
     Active Substance: ENOXAPARIN SODIUM
     Indication: INTRACRANIAL VENOUS SINUS THROMBOSIS
     Dosage: 40 MILLIGRAM DAILY;
     Route: 058
     Dates: start: 20150310
  5. VINCRISTINE [Suspect]
     Active Substance: VINCRISTINE
     Dosage: 1.8 MILLIGRAM DAILY;
     Route: 040
  6. BACTRIM [Concomitant]
     Active Substance: SULFAMETHOXAZOLE\TRIMETHOPRIM
     Indication: ANTIFUNGAL PROPHYLAXIS
     Route: 048
     Dates: start: 20150203
  7. PURINETHOL [Concomitant]
     Active Substance: MERCAPTOPURINE
     Dosage: 25 MILLIGRAM DAILY; ACCORDING TO PROTOCOL OF TRIAL COG AALL1131
     Route: 048
     Dates: start: 20150601
  8. KEPPRA [Concomitant]
     Active Substance: LEVETIRACETAM
     Dosage: 1000 MILLIGRAM DAILY; CONTINUING
     Route: 048
     Dates: start: 20150310

REACTIONS (4)
  - Confusional state [Recovered/Resolved]
  - Headache [Recovered/Resolved]
  - Tremor [Recovered/Resolved]
  - Leukoencephalopathy [Recovered/Resolved with Sequelae]

NARRATIVE: CASE EVENT DATE: 20150607
